FAERS Safety Report 7320957-9 (Version None)
Quarter: 2011Q1

REPORT INFORMATION
  Report Type: 
  Country: None (occurrence: None)
  Receive Date: 20110228
  Receipt Date: 20110218
  Transmission Date: 20110831
  Serious: Yes (Death, Hospitalization, Other)
  Sender: FDA-Public Use
  Company Number: GB-JNJFOC-20110203791

PATIENT
  Age: 86 Year
  Sex: Male
  Weight: 82.55 kg

DRUGS (8)
  1. MELOXICAM [Concomitant]
  2. ASPIRIN [Concomitant]
  3. FOSAMAX [Concomitant]
     Route: 065
  4. RAMIPRIL [Concomitant]
     Indication: HYPERTENSION
     Route: 065
  5. TRAMADOL HCL [Suspect]
     Indication: BACK PAIN
     Route: 048
  6. PREGABALIN [Concomitant]
     Indication: ARTHRALGIA
     Route: 065
  7. SINEMET [Interacting]
     Indication: PARKINSON'S DISEASE
     Route: 065
  8. LANSOPRAZOLE [Concomitant]

REACTIONS (20)
  - DYSPNOEA [None]
  - RASH [None]
  - PULMONARY EMBOLISM [None]
  - DRUG INTERACTION [None]
  - ASTHENIA [None]
  - MYOCARDIAL INFARCTION [None]
  - NECK PAIN [None]
  - ALTERED STATE OF CONSCIOUSNESS [None]
  - HEADACHE [None]
  - AGITATION [None]
  - PNEUMONIA [None]
  - SOMNOLENCE [None]
  - HYPERTENSION [None]
  - MENINGITIS [None]
  - CEREBRAL INFARCTION [None]
  - CONFUSIONAL STATE [None]
  - RESTLESSNESS [None]
  - DRUG INEFFECTIVE [None]
  - SEPSIS [None]
  - SUBARACHNOID HAEMORRHAGE [None]
